FAERS Safety Report 4980184-7 (Version None)
Quarter: 2006Q2

REPORT INFORMATION
  Report Type: 
  Country: None (occurrence: None)
  Receive Date: 20060424
  Receipt Date: 20060224
  Transmission Date: 20061013
  Serious: Yes (Other)
  Sender: FDA-Public Use
  Company Number: 2006AP00981

PATIENT
  Age: 629 Month
  Sex: Male
  Weight: 85 kg

DRUGS (7)
  1. CRESTOR [Suspect]
     Indication: HYPERCHOLESTEROLAEMIA
     Route: 048
     Dates: start: 20051028, end: 20051218
  2. GASTER D [Concomitant]
     Indication: GASTROINTESTINAL DISORDER
     Route: 048
     Dates: start: 20030426
  3. ASPIRIN [Concomitant]
     Indication: ANGINA PECTORIS
     Route: 048
     Dates: start: 20030426
  4. RENIVACE [Concomitant]
     Indication: MYOCARDIAL INFARCTION
     Route: 048
     Dates: start: 20030427
  5. SIGMART [Concomitant]
     Indication: ANGINA PECTORIS
     Route: 048
     Dates: start: 20030428, end: 20051205
  6. INDERAL [Concomitant]
     Indication: ANGINA PECTORIS
     Route: 048
     Dates: start: 20051028, end: 20051205
  7. PANALDINE [Concomitant]
     Indication: ANGINA PECTORIS
     Route: 048
     Dates: start: 20051109

REACTIONS (2)
  - LEUKAEMIA [None]
  - RASH [None]
